FAERS Safety Report 18483322 (Version 1)
Quarter: 2020Q4

REPORT INFORMATION
  Report Type: Not Available
  Country: None (occurrence: None)
  Receive Date: 20201109
  Receipt Date: 20201109
  Transmission Date: 20210114
  Serious: No
  Sender: FDA-Public Use
  Company Number: ROCHE-2573555

PATIENT

DRUGS (1)
  1. PULMOZYME [Suspect]
     Active Substance: DORNASE ALFA
     Dosage: DAILY, ONGOING YES

REACTIONS (3)
  - Off label use [None]
  - No adverse event [None]
  - Intentional product use issue [None]
